FAERS Safety Report 4286867-9 (Version None)
Quarter: 2004Q1

REPORT INFORMATION
  Report Type: 
  Country: None (occurrence: None)
  Receive Date: 20040121
  Receipt Date: 20030602
  Transmission Date: 20041129
  Serious: Yes (Hospitalization)
  Sender: FDA-Public Use
  Company Number: A03200301173

PATIENT
  Age: 85 Year
  Sex: Female

DRUGS (3)
  1. PLAVIX [Suspect]
     Indication: TRANSIENT ISCHAEMIC ATTACK
     Dosage: 75 MG QD - ORAL
     Route: 048
     Dates: start: 20030101, end: 20030529
  2. ACETYLSALICYLIC ACID SRT [Concomitant]
  3. INSULIN [Concomitant]

REACTIONS (2)
  - CONTUSION [None]
  - EYE PRURITUS [None]
